FAERS Safety Report 9592474 (Version 1)
Quarter: 2013Q3

REPORT INFORMATION
  Report Type: Spontaneous
  Country: US (occurrence: None)
  Receive Date: 20130927
  Receipt Date: 20130927
  Transmission Date: 20140515
  Serious: Yes (Other)
  Sender: FDA-Public Use
  Company Number: CABO-13003214

PATIENT
  Age: 48 Year
  Sex: Male

DRUGS (11)
  1. COMETRIQ [Suspect]
     Indication: RENAL CANCER
     Route: 048
     Dates: start: 20130618, end: 20130724
  2. AMIODARONE (AMIODARONE) [Concomitant]
  3. CYMBALTA (DULOXETINE HYDROCHLORIDE) [Concomitant]
  4. OXYCODONE (OXYCODONE) [Concomitant]
  5. OXYCONTIN (OXYCODONE HYDROCHLORIDE) [Concomitant]
  6. PANTOPRAZOLE (PANTOPRAZOLE) [Concomitant]
  7. MULTIVITAMIN (VITAMINS NOS) [Concomitant]
  8. SENNA (SENNA ALEXANDRINA) [Concomitant]
  9. ZOLPIDEM (ZOLPIDEM) [Concomitant]
  10. PROCHLOROPERAZINE (PROCHLORPERAZINE) [Concomitant]
  11. OXYGEN (OXYGEN) [Concomitant]

REACTIONS (6)
  - Insomnia [None]
  - Fatigue [None]
  - Dizziness [None]
  - Weight decreased [None]
  - Oral pain [None]
  - Impaired healing [None]
